FAERS Safety Report 16726959 (Version 2)
Quarter: 2019Q4

REPORT INFORMATION
  Report Type: Report from Study
  Country: CA (occurrence: CA)
  Receive Date: 20190821
  Receipt Date: 20191119
  Transmission Date: 20200122
  Serious: Yes (Hospitalization)
  Sender: FDA-Public Use
  Company Number: CA-EXELIXIS-CABO-19023238

PATIENT
  Sex: Male

DRUGS (2)
  1. CABOMETYX [Suspect]
     Active Substance: CABOZANTINIB S-MALATE
     Dosage: 20 MG, QD
     Route: 048
     Dates: end: 20191113
  2. CABOMETYX [Suspect]
     Active Substance: CABOZANTINIB S-MALATE
     Indication: RENAL CELL CARCINOMA
     Dosage: 40 MG, QD
     Route: 048
     Dates: start: 20180208

REACTIONS (2)
  - Drug ineffective [Unknown]
  - Adverse drug reaction [Recovering/Resolving]
